FAERS Safety Report 9524046 (Version 1)
Quarter: 2013Q3

REPORT INFORMATION
  Report Type: Spontaneous
  Country: US (occurrence: None)
  Receive Date: 20130912
  Receipt Date: 20130912
  Transmission Date: 20140515
  Serious: Yes (Hospitalization)
  Sender: FDA-Public Use
  Company Number: None

PATIENT
  Age: 58 Year
  Sex: Male
  Weight: 92.4 kg

DRUGS (2)
  1. LISINOPRIL [Suspect]
     Dates: start: 20130607, end: 20130623
  2. LITHIUM [Suspect]
     Dates: start: 20090603, end: 20130626

REACTIONS (11)
  - Mental status changes [None]
  - Gait disturbance [None]
  - Tremor [None]
  - Asthenia [None]
  - Dizziness [None]
  - Antipsychotic drug level increased [None]
  - Drug interaction [None]
  - Toxicity to various agents [None]
  - Dysarthria [None]
  - Drooling [None]
  - Fall [None]
